FAERS Safety Report 6042173-3 (Version None)
Quarter: 2009Q1

REPORT INFORMATION
  Report Type: 
  Country: None (occurrence: None)
  Receive Date: 20090116
  Receipt Date: 20090107
  Transmission Date: 20090719
  Serious: Yes (Other)
  Sender: FDA-Public Use
  Company Number: PHEH2009US00593

PATIENT
  Sex: Male

DRUGS (8)
  1. ZOMETA [Suspect]
     Indication: PROSTATE CANCER METASTATIC
     Dosage: 4 MG MONTHLY
     Route: 042
     Dates: start: 20040101, end: 20041201
  2. RADIATION [Concomitant]
     Indication: METASTASIS
  3. CASODEX [Concomitant]
  4. LUPRON [Concomitant]
  5. ZOLOFT [Concomitant]
  6. DETROL [Concomitant]
  7. PRILOSEC [Concomitant]
  8. MEGACE [Concomitant]

REACTIONS (1)
  - BONE DISORDER [None]
